FAERS Safety Report 7679605-0 (Version None)
Quarter: 2011Q3

REPORT INFORMATION
  Report Type: 
  Country: None (occurrence: None)
  Receive Date: 20110809
  Receipt Date: 20110725
  Transmission Date: 20111222
  Serious: Yes (Hospitalization)
  Sender: FDA-Public Use
  Company Number: 2011S1000833

PATIENT
  Age: 52 Year
  Sex: Male
  Weight: 85.2 kg

DRUGS (3)
  1. ZETIA [Suspect]
     Indication: HYPERCHOLESTEROLAEMIA
     Dosage: 10 MG, 1X, PO
     Route: 048
     Dates: start: 20110127, end: 20110525
  2. ZETIA [Suspect]
     Indication: HYPERCHOLESTEROLAEMIA
     Dosage: 10 MG, 1X, PO
     Route: 048
     Dates: start: 20110530, end: 20110701
  3. LIVALO [Suspect]
     Indication: HYPERCHOLESTEROLAEMIA
     Dosage: 2 MG, 1X, PO
     Route: 048
     Dates: start: 20090116, end: 20110525

REACTIONS (6)
  - MALAISE [None]
  - MYALGIA [None]
  - FALL [None]
  - RHABDOMYOLYSIS [None]
  - MUSCULAR WEAKNESS [None]
  - HYPOKALAEMIA [None]
